FAERS Safety Report 8545283-1 (Version None)
Quarter: 2012Q3

REPORT INFORMATION
  Report Type: 
  Country: None (occurrence: None)
  Receive Date: 20120727
  Receipt Date: 20120719
  Transmission Date: 20120928
  Serious: Yes (Other)
  Sender: FDA-Public Use
  Company Number: US-BAYER-2012-051510

PATIENT
  Sex: Female

DRUGS (10)
  1. OMNISCAN [Suspect]
     Indication: NUCLEAR MAGNETIC RESONANCE IMAGING
  2. MULTIHANCE [Suspect]
     Indication: NUCLEAR MAGNETIC RESONANCE IMAGING
  3. MAGNEVIST [Suspect]
     Indication: NUCLEAR MAGNETIC RESONANCE IMAGING
     Dosage: UNK
  4. PROHANCE [Suspect]
     Indication: ANGIOGRAM
  5. MAGNEVIST [Suspect]
     Indication: ANGIOGRAM
  6. MULTIHANCE [Suspect]
     Indication: ANGIOGRAM
  7. OMNISCAN [Suspect]
     Indication: ANGIOGRAM
  8. OPTIMARK [Suspect]
     Indication: ANGIOGRAM
  9. OPTIMARK [Suspect]
     Indication: NUCLEAR MAGNETIC RESONANCE IMAGING
  10. PROHANCE [Suspect]
     Indication: NUCLEAR MAGNETIC RESONANCE IMAGING

REACTIONS (15)
  - FIBROSIS [None]
  - SKIN ULCER [None]
  - DRY SKIN [None]
  - GENERAL PHYSICAL HEALTH DETERIORATION [None]
  - EMOTIONAL DISTRESS [None]
  - SKIN PLAQUE [None]
  - DISABILITY [None]
  - ANXIETY [None]
  - PRURITUS [None]
  - PAIN [None]
  - NEPHROGENIC SYSTEMIC FIBROSIS [None]
  - ARTHRALGIA [None]
  - MUSCLE CONTRACTURE [None]
  - INJURY [None]
  - DEFORMITY [None]
